FAERS Safety Report 8870625 (Version 1)
Quarter: 2012Q4

REPORT INFORMATION
  Report Type: 
  Country: US (occurrence: US)
  Receive Date: 20121026
  Receipt Date: 20121026
  Transmission Date: 20130627
  Serious: No
  Sender: FDA-Public Use
  Company Number: US-AMGEN-USASP2012046809

PATIENT
  Age: 61 Year
  Sex: Female
  Weight: 61.68 kg

DRUGS (14)
  1. ENBREL [Suspect]
     Indication: PRODUCT USED FOR UNKNOWN INDICATION
     Dosage: 50 mg, qwk
     Route: 058
  2. CENTRUM SILVER                     /01292501/ [Concomitant]
     Dosage: UNK
  3. RESTASIS [Concomitant]
     Dosage: 0.05 %, UNK
  4. AMBIEN [Concomitant]
     Dosage: 10 mg, UNK
  5. METHOTREXATE [Concomitant]
     Dosage: 2.5 mg, UNK
  6. ZITHROMAX [Concomitant]
     Dosage: UNK
  7. Z-PAK [Concomitant]
     Dosage: UNK
  8. TRAMADOL HCL [Concomitant]
     Dosage: 50 mg, UNK
  9. FOLIC ACID [Concomitant]
     Dosage: 1 mg, UNK
  10. GENTAMICIN [Concomitant]
     Dosage: 0.3 %, UNK
  11. CITRACAL PLUS [Concomitant]
     Dosage: UNK
  12. AMITRIPTYLIN [Concomitant]
     Dosage: 150 mg, UNK
  13. MIRALAX                            /00754501/ [Concomitant]
     Dosage: 3350 NF
  14. TYLENOL ARTHRITIS [Concomitant]
     Dosage: 650 mg, UNK

REACTIONS (2)
  - Conjunctivitis [Unknown]
  - Sinusitis [Unknown]
